FAERS Safety Report 9990645 (Version 1)
Quarter: 2014Q1

REPORT INFORMATION
  Report Type: Spontaneous
  Country: US (occurrence: None)
  Receive Date: 20140307
  Receipt Date: 20140307
  Transmission Date: 20141002
  Serious: Yes (Hospitalization)
  Sender: FDA-Public Use
  Company Number: None

PATIENT
  Age: 64 Year
  Sex: Male

DRUGS (1)
  1. XTANDI 40MG ASTELLA PHARMA [Suspect]
     Indication: PROSTATE CANCER
     Route: 048
     Dates: start: 20140114

REACTIONS (1)
  - Herpes zoster [None]
